FAERS Safety Report 5908083-4 (Version None)
Quarter: 2008Q4

REPORT INFORMATION
  Report Type: 
  Country: None (occurrence: None)
  Receive Date: 20081003
  Receipt Date: 20080922
  Transmission Date: 20090506
  Serious: Yes (Other)
  Sender: FDA-Public Use
  Company Number: US-PFIZER INC-2008079736

PATIENT
  Sex: Female
  Weight: 48.636 kg

DRUGS (5)
  1. DETROL LA [Suspect]
     Indication: URINARY INCONTINENCE
     Dates: start: 20070101
  2. ANALGESICS [Concomitant]
  3. NEURONTIN [Concomitant]
  4. FLONASE [Concomitant]
  5. VITAMINS [Concomitant]

REACTIONS (5)
  - AMNESIA [None]
  - BODY HEIGHT DECREASED [None]
  - CONFUSIONAL STATE [None]
  - SPINAL DISORDER [None]
  - WEIGHT DECREASED [None]
